FAERS Safety Report 6070164-5 (Version None)
Quarter: 2009Q1

REPORT INFORMATION
  Report Type: 
  Country: None (occurrence: None)
  Receive Date: 20090209
  Receipt Date: 20090202
  Transmission Date: 20090719
  Serious: Yes (Hospitalization)
  Sender: FDA-Public Use
  Company Number: FR-WYE-G03045709

PATIENT
  Age: 77 Year
  Sex: Female

DRUGS (22)
  1. TAZOCILLINE [Suspect]
     Route: 042
     Dates: start: 20081210, end: 20081215
  2. ORELOX [Suspect]
     Dosage: 200 MG TOTAL DAILY
     Route: 048
     Dates: start: 20081208, end: 20081208
  3. TAVANIC [Concomitant]
     Dosage: 500 MG TOTAL DAILY
     Route: 048
     Dates: start: 20081210
  4. SPIRIVA [Concomitant]
     Dosage: UNKNOWN
  5. SOLUPRED [Concomitant]
     Dosage: UNKNOWN
  6. ZITHROMAX [Concomitant]
     Dosage: UNKNOWN
  7. NEXIUM [Concomitant]
     Dosage: UNKNOWN
  8. TRACLEER [Concomitant]
     Dosage: UNKNOWN
  9. PREVISCAN [Concomitant]
     Dosage: UNKNOWN
  10. BACTRIM DS [Concomitant]
     Dosage: UNKNOWN
  11. LASILIX [Concomitant]
     Dosage: UNKNOWN
  12. FLUTICASONE PROPIONATE [Concomitant]
     Dosage: UNKNOWN
  13. VENTOLIN [Concomitant]
     Dosage: UNKNOWN
  14. ATROVENT [Concomitant]
     Dosage: UNKNOWN
  15. DIFFU K [Concomitant]
     Dosage: UNKNOWN
  16. DIAMOX [Concomitant]
     Dosage: UNKNOWN
  17. ELUDRIL [Concomitant]
     Dosage: UNKNOWN
  18. CALCIDOSE [Concomitant]
     Dosage: UNKNOWN
  19. COLECALCIFEROL [Concomitant]
     Dosage: UNKNOWN
  20. LAMALINE [Concomitant]
     Dosage: UNKNOWN
  21. STILNOX [Concomitant]
     Dosage: UNKNOWN
  22. CEFTRIAXONE [Suspect]
     Dosage: 1 G TOTAL DAILY
     Dates: start: 20081209, end: 20081209

REACTIONS (4)
  - CROSS SENSITIVITY REACTION [None]
  - PRURITUS [None]
  - RASH ERYTHEMATOUS [None]
  - TOXIC SKIN ERUPTION [None]
